FAERS Safety Report 7459455-0 (Version None)
Quarter: 2011Q2

REPORT INFORMATION
  Report Type: 
  Country: None (occurrence: None)
  Receive Date: 20110504
  Receipt Date: 20110504
  Transmission Date: 20111010
  Serious: Yes (Other)
  Sender: FDA-Public Use
  Company Number: None

PATIENT
  Age: 2 Year
  Sex: Male
  Weight: 17.6903 kg

DRUGS (1)
  1. SINGULAIR [Suspect]
     Indication: ALLERGIC COUGH
     Dosage: 1 TABLET AT BEDTIME PO
     Route: 048
     Dates: start: 20110429, end: 20110501

REACTIONS (3)
  - ABNORMAL BEHAVIOUR [None]
  - AGGRESSION [None]
  - SCREAMING [None]
